FAERS Safety Report 5684080-1 (Version None)
Quarter: 2008Q1

REPORT INFORMATION
  Report Type: 
  Country: None (occurrence: None)
  Receive Date: 20080328
  Receipt Date: 20070328
  Transmission Date: 20080703
  Serious: No
  Sender: FDA-Public Use
  Company Number: US-AMGEN-KDL210072

PATIENT
  Sex: Female
  Weight: 110.3 kg

DRUGS (6)
  1. NEULASTA [Suspect]
     Indication: CHEMOTHERAPY
     Route: 058
     Dates: start: 20070102
  2. POTASSIUM CHLORIDE [Concomitant]
  3. LISINOPRIL [Concomitant]
  4. MOBIC [Concomitant]
  5. ATENOLOL [Concomitant]
  6. GLUCOTROL [Concomitant]

REACTIONS (1)
  - RASH PRURITIC [None]
